FAERS Safety Report 8971217 (Version 2)
Quarter: 2013Q1

REPORT INFORMATION
  Report Type: Spontaneous
  Country: BR (occurrence: BR)
  Receive Date: 20121217
  Receipt Date: 20130308
  Transmission Date: 20140127
  Serious: Yes (Other)
  Sender: FDA-Public Use
  Company Number: BR-GLAXOSMITHKLINE-A1005453A

PATIENT
  Age: 57 Year
  Sex: Male

DRUGS (12)
  1. VALTREX [Suspect]
     Indication: ORAL HERPES
     Dosage: 500MG UNKNOWN
  2. NEXIUM [Concomitant]
  3. BENICAR HCT [Concomitant]
  4. ACONITUM NAPELLUS [Concomitant]
  5. ARGENTUM NITRICUM [Concomitant]
  6. ARSENICUM ALBUM [Concomitant]
  7. VALERIANA OFFICINALIS [Concomitant]
  8. UNKNOWN [Concomitant]
  9. PHOSPHORUS [Concomitant]
  10. EPHYNAL [Concomitant]
  11. CRESTOR [Concomitant]
  12. ZYLORIC [Concomitant]
     Dosage: 100MG THREE TIMES PER DAY

REACTIONS (3)
  - Deafness bilateral [Unknown]
  - Angiopathy [Recovering/Resolving]
  - Tinnitus [Not Recovered/Not Resolved]
